FAERS Safety Report 7395616-7 (Version None)
Quarter: 2011Q2

REPORT INFORMATION
  Report Type: 
  Country: None (occurrence: None)
  Receive Date: 20110405
  Receipt Date: 20110331
  Transmission Date: 20111010
  Serious: Yes (Hospitalization)
  Sender: FDA-Public Use
  Company Number: US-CEPHALON-2011001541

PATIENT
  Sex: Male
  Weight: 64 kg

DRUGS (8)
  1. BENADRYL [Concomitant]
     Dates: start: 20110201, end: 20110329
  2. TREANDA [Suspect]
     Route: 042
     Dates: start: 20110301, end: 20110302
  3. ALOXI [Concomitant]
     Dates: start: 20110201, end: 20110329
  4. TREANDA [Suspect]
     Indication: MANTLE CELL LYMPHOMA
     Route: 042
     Dates: start: 20110201, end: 20110202
  5. TREANDA [Suspect]
     Route: 042
     Dates: start: 20110329, end: 20110329
  6. RITUXIMAB [Concomitant]
     Indication: MANTLE CELL LYMPHOMA
     Route: 042
     Dates: start: 20110201, end: 20110201
  7. RITUXIMAB [Concomitant]
     Route: 042
     Dates: start: 20110301, end: 20110301
  8. EMEND [Concomitant]
     Dates: start: 20110201, end: 20110329

REACTIONS (5)
  - ERYTHEMA [None]
  - HEART RATE INCREASED [None]
  - BODY TEMPERATURE INCREASED [None]
  - HYPERSENSITIVITY [None]
  - URTICARIA [None]
